FAERS Safety Report 9473148 (Version 2)
Quarter: 2013Q3

REPORT INFORMATION
  Report Type: Spontaneous
  Country: US (occurrence: US)
  Receive Date: 20130823
  Receipt Date: 20130823
  Transmission Date: 20140515
  Serious: Yes (Other)
  Sender: FDA-Public Use
  Company Number: US-BRISTOL-MYERS SQUIBB COMPANY-18595223

PATIENT
  Age: 74 Year
  Sex: Male

DRUGS (7)
  1. SPRYCEL (CML) TABS 100 MG [Suspect]
     Indication: CHRONIC MYELOID LEUKAEMIA
     Dosage: EXP DT:JUL2015
     Route: 048
     Dates: start: 20130220
  2. LISINOPRIL [Suspect]
  3. METOPROLOL [Concomitant]
  4. SIMVASTATIN [Concomitant]
  5. PLAVIX [Concomitant]
  6. FUROSEMIDE [Concomitant]
  7. LISINOPRIL [Concomitant]
     Indication: HYPERTENSION

REACTIONS (5)
  - Pneumonia [Recovered/Resolved]
  - Red blood cell count decreased [Unknown]
  - Weight increased [Unknown]
  - Dry skin [Unknown]
  - Cough [Recovered/Resolved]
